FAERS Safety Report 20050610 (Version 1)
Quarter: 2021Q4

REPORT INFORMATION
  Report Type: Report from Study
  Country: AR (occurrence: AR)
  Receive Date: 20211109
  Receipt Date: 20211109
  Transmission Date: 20220303
  Serious: Yes (Other)
  Sender: FDA-Public Use
  Company Number: AR-ABBVIE-21K-007-4155094-00

PATIENT
  Age: 58 Year
  Sex: Female

DRUGS (1)
  1. HUMIRA [Suspect]
     Active Substance: ADALIMUMAB
     Indication: Uveitis
     Route: 058
     Dates: start: 20131201

REACTIONS (3)
  - Intraocular pressure decreased [Not Recovered/Not Resolved]
  - Accident at home [Unknown]
  - Eye injury [Recovering/Resolving]

NARRATIVE: CASE EVENT DATE: 20211001
